FAERS Safety Report 9636528 (Version 3)
Quarter: 2014Q1

REPORT INFORMATION
  Report Type: Spontaneous
  Country: US (occurrence: None)
  Receive Date: 20131017
  Receipt Date: 20140324
  Transmission Date: 20141002
  Serious: Yes (Life-Threatening, Hospitalization, Other)
  Sender: FDA-Public Use
  Company Number: ADR-2013-01857

PATIENT
  Age: 44 Year
  Sex: Male

DRUGS (1)
  1. LIORESAL [Suspect]
     Indication: MUSCLE SPASTICITY
     Dosage: 450MCG APPROX)

REACTIONS (13)
  - Pruritus [None]
  - Muscle spasms [None]
  - Respiratory failure [None]
  - Cardiomyopathy [None]
  - Multi-organ failure [None]
  - Body temperature increased [None]
  - Drug withdrawal syndrome [None]
  - Injury [None]
  - Myocardial infarction [None]
  - Leg amputation [None]
  - Unresponsive to stimuli [None]
  - Renal failure [None]
  - Continuous haemodiafiltration [None]
